FAERS Safety Report 7081543-1 (Version None)
Quarter: 2010Q4

REPORT INFORMATION
  Report Type: 
  Country: None (occurrence: None)
  Receive Date: 20101103
  Receipt Date: 20101025
  Transmission Date: 20110411
  Serious: Yes (Other)
  Sender: FDA-Public Use
  Company Number: SG-WATSON-2010-14241

PATIENT
  Sex: Female

DRUGS (2)
  1. ALPRAZOLAM [Suspect]
     Indication: PANIC ATTACK
     Dosage: 1/4 MG, 3 TIMES A DAY AS NEEDED
     Dates: start: 20080101
  2. FLUOXETINE [Suspect]
     Indication: OBSESSIVE-COMPULSIVE DISORDER
     Dosage: 20 MG, QAM
     Dates: start: 20080101

REACTIONS (2)
  - INHIBITORY DRUG INTERACTION [None]
  - SUICIDAL IDEATION [None]
